FAERS Safety Report 5538261-8 (Version None)
Quarter: 2007Q4

REPORT INFORMATION
  Report Type: 
  Country: None (occurrence: None)
  Receive Date: 20071123
  Receipt Date: 20070808
  Transmission Date: 20080405
  Serious: Yes (Other)
  Sender: FDA-Public Use
  Company Number: US-JNJFOC-20070802191

PATIENT
  Age: 38 Year
  Sex: Female
  Weight: 83.9154 kg

DRUGS (4)
  1. LEVAQUIN [Suspect]
     Indication: SINUSITIS
     Dosage: 750 MG, IN 1 DAY, ORAL
     Route: 048
     Dates: start: 20070226, end: 20070226
  2. TOPAMAX [Concomitant]
  3. BENICAR                   (OLMESARTAN) UNSPECIFIED [Concomitant]
  4. PREMARIN                   (ESTROGENS CONJUGATED) UNSPECIFIED [Concomitant]

REACTIONS (1)
  - ANAPHYLACTIC REACTION [None]
